FAERS Safety Report 5703873-5 (Version None)
Quarter: 2008Q2

REPORT INFORMATION
  Report Type: 
  Country: None (occurrence: None)
  Receive Date: 20080414
  Receipt Date: 20080403
  Transmission Date: 20081010
  Serious: Yes (Other)
  Sender: FDA-Public Use
  Company Number: DE-ELI_LILLY_AND_COMPANY-DE200711002420

PATIENT
  Sex: Female

DRUGS (26)
  1. OLANZAPINE [Suspect]
     Indication: DEPRESSION
     Dosage: 5 MG, UNK
     Dates: start: 20070907
  2. OLANZAPINE [Suspect]
     Dosage: 7.5 MG, UNK
     Dates: start: 20070910
  3. OLANZAPINE [Suspect]
     Dosage: 10 MG, UNK
     Dates: start: 20070920
  4. OLANZAPINE [Suspect]
     Dosage: 5 MG, UNK
     Dates: start: 20071012
  5. OLANZAPINE [Suspect]
     Dosage: 7.5 MG, UNK
     Dates: start: 20071029
  6. OLANZAPINE [Suspect]
     Dosage: 10 MG, UNK
     Dates: start: 20071101
  7. OLANZAPINE [Suspect]
     Dosage: 5 MG, UNK
     Dates: start: 20071105, end: 20071106
  8. BISOPROLOL FUMARATE [Concomitant]
     Indication: HYPERTENSION
     Dosage: 5 MG, 2/D
  9. EBRANTIL [Concomitant]
     Indication: HYPERTENSION
     Dosage: 90 MG, 3/D
     Dates: end: 20070101
  10. EBRANTIL [Concomitant]
     Dosage: 90 MG, 2/D
  11. NORVASC [Concomitant]
     Indication: HYPERTENSION
     Dosage: 5 MG, 2/D
  12. TREVILOR [Concomitant]
     Indication: HYPERTENSION
     Dosage: 75 MG, UNK
     Dates: start: 20070829
  13. TREVILOR [Concomitant]
     Dosage: 225 MG, UNK
     Dates: start: 20070904, end: 20071001
  14. IRBESARTAN [Concomitant]
     Indication: HYPERTENSION
     Dosage: 150 MG, DAILY (1/D)
  15. DISALUNIL [Concomitant]
     Indication: HYPERTENSION
     Dosage: 12.5 MG, DAILY (1/D)
     Dates: end: 20070101
  16. CIPRALEX [Concomitant]
     Dosage: 5 MG, DAILY (1/D)
     Dates: start: 20071004
  17. CIPRALEX [Concomitant]
     Dosage: 20 MG, DAILY (1/D)
     Dates: start: 20071018
  18. PAROXETINE HCL [Concomitant]
     Dosage: 10 MG, UNK
     Dates: start: 20071002
  19. PAROXETINE HCL [Concomitant]
     Dosage: 20 MG, UNK
     Dates: start: 20071004, end: 20071004
  20. XIMOVAN [Concomitant]
     Indication: INSOMNIA
     Dosage: 1 D/F, AS NEEDED
  21. KATADOLON [Concomitant]
     Indication: BACK PAIN
     Dosage: 1 D/F, AS NEEDED
  22. RIOPAN [Concomitant]
     Dosage: 1 D/F, AS NEEDED
  23. DOLO-DOBENDAN [Concomitant]
     Indication: PHARYNGOLARYNGEAL PAIN
  24. LINOLA [Concomitant]
  25. DERMOXIN [Concomitant]
  26. BUDESONIDE [Concomitant]

REACTIONS (2)
  - HAEMOLYTIC ANAEMIA [None]
  - RASH [None]
